FAERS Safety Report 7908388-1 (Version None)
Quarter: 2011Q4

REPORT INFORMATION
  Report Type: 
  Country: None (occurrence: None)
  Receive Date: 20111111
  Receipt Date: 20111103
  Transmission Date: 20120403
  Serious: Yes (Other)
  Sender: FDA-Public Use
  Company Number: US-JNJFOC-20111103803

PATIENT
  Sex: Male

DRUGS (2)
  1. PEPCID AC [Suspect]
     Indication: PRODUCT USED FOR UNKNOWN INDICATION
     Route: 048
  2. PEPCID AC [Suspect]
     Route: 048

REACTIONS (1)
  - RENAL FUNCTION TEST ABNORMAL [None]
